FAERS Safety Report 15102789 (Version 1)
Quarter: 2018Q3

REPORT INFORMATION
  Report Type: Spontaneous
  Country: US (occurrence: US)
  Receive Date: 20180703
  Receipt Date: 20180703
  Transmission Date: 20181010
  Serious: No
  Sender: FDA-Public Use
  Company Number: US-SA-2018SA170545

PATIENT
  Sex: Male

DRUGS (13)
  1. PRALUENT [Suspect]
     Active Substance: ALIROCUMAB
     Indication: CEREBRAL ARTERY STENOSIS
  2. NIFEDIPINE. [Concomitant]
     Active Substance: NIFEDIPINE
  3. SPIRONOLACTONE. [Concomitant]
     Active Substance: SPIRONOLACTONE
  4. HYDRALAZINE HCL [Concomitant]
     Active Substance: HYDRALAZINE HYDROCHLORIDE
  5. LANTUS [Concomitant]
     Active Substance: INSULIN GLARGINE
  6. VICTOZA [Concomitant]
     Active Substance: LIRAGLUTIDE
  7. GLIMEPIRIDE. [Concomitant]
     Active Substance: GLIMEPIRIDE
  8. FLUVIRINE [Concomitant]
  9. PRALUENT [Suspect]
     Active Substance: ALIROCUMAB
     Indication: CEREBRAL ARTERY OCCLUSION
     Dosage: 150 MG, QOW
     Route: 058
     Dates: start: 20160502
  10. GABAPENTIN. [Concomitant]
     Active Substance: GABAPENTIN
  11. BENICAR [Concomitant]
     Active Substance: OLMESARTAN MEDOXOMIL
  12. METFORMIN [Concomitant]
     Active Substance: METFORMIN HYDROCHLORIDE
  13. METOPROLOL. [Concomitant]
     Active Substance: METOPROLOL

REACTIONS (1)
  - Injection site haemorrhage [Not Recovered/Not Resolved]
